FAERS Safety Report 6704414-6 (Version None)
Quarter: 2010Q2

REPORT INFORMATION
  Report Type: 
  Country: None (occurrence: None)
  Receive Date: 20100430
  Receipt Date: 20100422
  Transmission Date: 20101027
  Serious: Yes (Hospitalization, Other)
  Sender: FDA-Public Use
  Company Number: JP-BRISTOL-MYERS SQUIBB COMPANY-15079262

PATIENT
  Sex: Female

DRUGS (2)
  1. TAXOL [Suspect]
     Indication: NEOPLASM MALIGNANT
     Route: 041
  2. PARAPLATIN [Suspect]
     Indication: NEOPLASM MALIGNANT
     Route: 041

REACTIONS (3)
  - ANXIETY [None]
  - FEBRILE NEUTROPENIA [None]
  - PYELONEPHRITIS [None]
